FAERS Safety Report 7607764-4 (Version None)
Quarter: 2011Q3

REPORT INFORMATION
  Report Type: 
  Country: None (occurrence: None)
  Receive Date: 20110713
  Receipt Date: 20110616
  Transmission Date: 20111222
  Serious: Yes (Hospitalization, Other)
  Sender: FDA-Public Use
  Company Number: PHHY2011TW54113

PATIENT
  Sex: Female
  Weight: 78 kg

DRUGS (1)
  1. ALISKIREN [Suspect]
     Indication: HYPERTENSION
     Dosage: 150 MG, QD
     Route: 048
     Dates: start: 20101122

REACTIONS (4)
  - PULMONARY FIBROSIS [None]
  - HEPATIC NEOPLASM MALIGNANT [None]
  - LUNG NEOPLASM [None]
  - HEPATIC CIRRHOSIS [None]
